FAERS Safety Report 4944367-4 (Version None)
Quarter: 2006Q1

REPORT INFORMATION
  Report Type: 
  Country: None (occurrence: None)
  Receive Date: 20060315
  Receipt Date: 20060303
  Transmission Date: 20060701
  Serious: Yes (Death)
  Sender: FDA-Public Use
  Company Number: US-MERCK-0603USA00820

PATIENT
  Age: 53 Year
  Sex: Male

DRUGS (1)
  1. VIOXX [Suspect]
     Route: 048
     Dates: start: 20001201, end: 20020301

REACTIONS (3)
  - ARTERIOSCLEROSIS [None]
  - HYPERTENSIVE HEART DISEASE [None]
  - MYOCARDIAL INFARCTION [None]
